FAERS Safety Report 15742189 (Version 1)
Quarter: 2018Q4

REPORT INFORMATION
  Report Type: Report from Study
  Country: US (occurrence: US)
  Receive Date: 20181219
  Receipt Date: 20181219
  Transmission Date: 20190205
  Serious: Yes (Hospitalization, Other)
  Sender: FDA-Public Use
  Company Number: US-GILEAD-2018-0380661

PATIENT
  Age: 26 Year
  Sex: Male

DRUGS (7)
  1. PERTZYE [Concomitant]
     Active Substance: PANCRELIPASE AMYLASE\PANCRELIPASE LIPASE\PANCRELIPASE PROTEASE
  2. TEZACAFTOR [Concomitant]
     Active Substance: TEZACAFTOR
  3. AZTREONAM LYSINE [Suspect]
     Active Substance: AZTREONAM LYSINE
     Indication: CYSTIC FIBROSIS
     Dosage: 1 DF, TID X 28, OFF 28
     Route: 055
     Dates: start: 20180225
  4. PULMOZYME [Concomitant]
     Active Substance: DORNASE ALFA
  5. PROAIR [SALBUTAMOL SULFATE] [Concomitant]
  6. MVW COMPLETE FORMULATION D3000 [Concomitant]
  7. IVACAFTOR [Concomitant]
     Active Substance: IVACAFTOR

REACTIONS (1)
  - Cystic fibrosis [Not Recovered/Not Resolved]
